FAERS Safety Report 8191227-4 (Version None)
Quarter: 2012Q1

REPORT INFORMATION
  Report Type: 
  Country: None (occurrence: None)
  Receive Date: 20120307
  Receipt Date: 20120229
  Transmission Date: 20120608
  Serious: Yes (Hospitalization)
  Sender: FDA-Public Use
  Company Number: ZA-B.I. PHARMACEUTICALS,INC./RIDGEFIELD-2012-AP-00179ZA

PATIENT
  Sex: Female
  Weight: 80 kg

DRUGS (6)
  1. PIPERACILLIN AND TAZOBACTAM [Concomitant]
     Indication: URINARY TRACT INFECTION
  2. PRADAXA [Suspect]
     Indication: HIP FRACTURE
     Dosage: 150 MG
     Route: 048
  3. PRADAXA [Suspect]
     Indication: HIP ARTHROPLASTY
  4. CIPROFLOXACIN [Concomitant]
     Indication: GASTRIC INFECTION
     Route: 042
  5. PRADAXA [Suspect]
     Indication: THROMBOSIS PROPHYLAXIS
  6. LEVOTHYROXINE SODIUM [Concomitant]
     Dosage: 0.2 MCG

REACTIONS (4)
  - GASTRIC INFECTION [None]
  - URINARY TRACT INFECTION [None]
  - PULMONARY EMBOLISM [None]
  - RESPIRATORY FAILURE [None]
